FAERS Safety Report 10155208 (Version 1)
Quarter: 2014Q2

REPORT INFORMATION
  Report Type: Spontaneous
  Country: US (occurrence: US)
  Receive Date: 20140506
  Receipt Date: 20140506
  Transmission Date: 20141212
  Serious: Yes (Other)
  Sender: FDA-Public Use
  Company Number: PHEH2014US008782

PATIENT
  Sex: Female

DRUGS (3)
  1. TASIGNA [Suspect]
     Indication: CHRONIC MYELOID LEUKAEMIA
     Dosage: 600 MG, BID
  2. MULTI-VIT [Concomitant]
  3. TYLENOL [Concomitant]

REACTIONS (5)
  - Skin cancer [Unknown]
  - Second primary malignancy [Unknown]
  - Decreased appetite [Unknown]
  - Rash [Unknown]
  - Alopecia [Unknown]
